FAERS Safety Report 9882222 (Version 1)
Quarter: 2014Q1

REPORT INFORMATION
  Report Type: Spontaneous
  Country: RU (occurrence: RU)
  Receive Date: 20140207
  Receipt Date: 20140207
  Transmission Date: 20141002
  Serious: Yes (Other)
  Sender: FDA-Public Use
  Company Number: RU-ALLERGAN-1401949US

PATIENT
  Age: 62 Year
  Sex: Female
  Weight: 70 kg

DRUGS (2)
  1. COMBIGAN [Suspect]
     Indication: GLAUCOMA
     Dosage: 1 DROP IN EACH EYE TWICE DAILY
     Route: 047
     Dates: start: 20131105, end: 20131109
  2. ALPHAGAN P [Suspect]
     Indication: GLAUCOMA
     Dosage: 1 DROP IN EACH EYE THREE TIMES DAILY
     Route: 047
     Dates: start: 20131018, end: 20131105

REACTIONS (5)
  - Bronchospasm [Recovered/Resolved]
  - Bronchitis chronic [Recovered/Resolved]
  - Cough [Recovered/Resolved]
  - Foreign body sensation in eyes [Recovered/Resolved]
  - Eye discharge [Recovered/Resolved]
